FAERS Safety Report 16251715 (Version 1)
Quarter: 2019Q2

REPORT INFORMATION
  Report Type: Spontaneous
  Country: US (occurrence: US)
  Receive Date: 20190428
  Receipt Date: 20190428
  Transmission Date: 20190711
  Serious: Yes (Other)
  Sender: FDA-Public Use
  Company Number: None

PATIENT
  Age: 57 Year
  Sex: Female
  Weight: 72 kg

DRUGS (5)
  1. CLONACEPAN [Concomitant]
  2. LAMOTRIGINE. [Concomitant]
     Active Substance: LAMOTRIGINE
  3. PROVIGIL [Concomitant]
     Active Substance: MODAFINIL
  4. LAMOTRIGINE 100 MG [Suspect]
     Active Substance: LAMOTRIGINE
     Indication: DEPRESSION
     Dosage: ?          QUANTITY:30 TABLET(S);?
     Route: 048
     Dates: start: 20190130, end: 20190320
  5. GABAPENTIN. [Concomitant]
     Active Substance: GABAPENTIN

REACTIONS (6)
  - Chest pain [None]
  - Fatigue [None]
  - Feeling abnormal [None]
  - Dyspnoea [None]
  - Product quality issue [None]
  - Product substitution issue [None]

NARRATIVE: CASE EVENT DATE: 20190301
